FAERS Safety Report 4470513-5 (Version None)
Quarter: 2004Q4

REPORT INFORMATION
  Report Type: 
  Country: None (occurrence: None)
  Receive Date: 20041005
  Receipt Date: 20041005
  Transmission Date: 20050328
  Serious: Yes (Hospitalization)
  Sender: FDA-Public Use
  Company Number: None

PATIENT
  Sex: Male

DRUGS (10)
  1. LISINOPRIL [Suspect]
     Indication: HYPERTENSION
     Dosage: 40 MG DAILY ORAL
     Route: 048
     Dates: start: 20040417, end: 20040520
  2. SIMVASTATIN [Concomitant]
  3. OXYBUTININ [Concomitant]
  4. IPRATROPIUM BROMIDE [Concomitant]
  5. FELODIPINE [Concomitant]
  6. ATENOLOL [Concomitant]
  7. ASPIRIN [Concomitant]
  8. ALBUTEROL [Concomitant]
  9. APAP TAB [Concomitant]
  10. HEPARIN [Concomitant]

REACTIONS (1)
  - HYPERKALAEMIA [None]
